FAERS Safety Report 8085866-9 (Version None)
Quarter: 2012Q1

REPORT INFORMATION
  Report Type: 
  Country: None (occurrence: None)
  Receive Date: 20120128
  Receipt Date: 20110420
  Transmission Date: 20120608
  Serious: No
  Sender: FDA-Public Use
  Company Number: US-ABBOTT-11P-163-0720406-00

PATIENT
  Age: 38 Year
  Sex: Male

DRUGS (1)
  1. HUMIRA [Suspect]
     Indication: PSORIASIS
     Dates: start: 20110328

REACTIONS (5)
  - MUSCLE ATROPHY [None]
  - NASOPHARYNGITIS [None]
  - RHINORRHOEA [None]
  - WEIGHT DECREASED [None]
  - COUGH [None]
